FAERS Safety Report 10888711 (Version 2)
Quarter: 2015Q2

REPORT INFORMATION
  Report Type: Spontaneous
  Country: KR (occurrence: KR)
  Receive Date: 20150305
  Receipt Date: 20150507
  Transmission Date: 20150821
  Serious: Yes (Other)
  Sender: FDA-Public Use
  Company Number: KR-NAPPMUNDI-GBR-2015-0025848

PATIENT
  Age: 76 Year
  Sex: Male

DRUGS (1)
  1. TARGIN PR TAB 10/5 MG [Suspect]
     Active Substance: NALOXONE HYDROCHLORIDE\OXYCODONE HYDROCHLORIDE
     Indication: BACK PAIN
     Dosage: 1 TABLET, BID
     Route: 048
     Dates: start: 20150106, end: 201502

REACTIONS (4)
  - Headache [Not Recovered/Not Resolved]
  - Transient ischaemic attack [Not Recovered/Not Resolved]
  - Dysuria [Not Recovered/Not Resolved]
  - Visual acuity reduced [Not Recovered/Not Resolved]

NARRATIVE: CASE EVENT DATE: 201501
